FAERS Safety Report 6412920-7 (Version None)
Quarter: 2009Q4

REPORT INFORMATION
  Report Type: 
  Country: None (occurrence: None)
  Receive Date: 20091023
  Receipt Date: 20091008
  Transmission Date: 20100525
  Serious: Yes (Other)
  Sender: FDA-Public Use
  Company Number: CA-GENENTECH-287071

PATIENT
  Sex: Male
  Weight: 92 kg

DRUGS (5)
  1. OMALIZUMAB [Suspect]
     Indication: ASTHMA
     Dosage: 300 MG, Q2W
     Route: 058
     Dates: start: 20090707
  2. OMALIZUMAB [Suspect]
     Dosage: 300 MG, UNK
     Route: 058
     Dates: start: 20061117
  3. OMALIZUMAB [Suspect]
     Dosage: 300 MG, UNK
     Route: 058
     Dates: start: 20090527
  4. PREDNISONE [Concomitant]
     Indication: DRUG USE FOR UNKNOWN INDICATION
  5. ADVAIR DISKUS 100/50 [Concomitant]
     Indication: DRUG USE FOR UNKNOWN INDICATION

REACTIONS (7)
  - ASTHMA [None]
  - BLOOD PRESSURE INCREASED [None]
  - HYPERSENSITIVITY [None]
  - NASAL CONGESTION [None]
  - NASOPHARYNGITIS [None]
  - PNEUMOTHORAX [None]
  - WHEEZING [None]
